FAERS Safety Report 5623499-1 (Version None)
Quarter: 2008Q1

REPORT INFORMATION
  Report Type: 
  Country: None (occurrence: None)
  Receive Date: 20080212
  Receipt Date: 20080131
  Transmission Date: 20080703
  Serious: Yes (Hospitalization)
  Sender: FDA-Public Use
  Company Number: US-ELI_LILLY_AND_COMPANY-US200801007091

PATIENT
  Sex: Male
  Weight: 111 kg

DRUGS (17)
  1. BYETTA [Suspect]
     Dosage: 5 UG, 2/D
     Route: 058
     Dates: start: 20071201, end: 20071230
  2. BYETTA [Suspect]
     Dosage: 10 UG, 2/D
     Route: 058
     Dates: start: 20071231, end: 20080121
  3. BYETTA [Suspect]
     Dosage: 10 UG, 2/D
     Route: 058
     Dates: start: 20080123, end: 20080127
  4. METFORMIN HCL [Concomitant]
     Dosage: 1000 MG, 2/D
     Route: 048
  5. GLIPIZIDE [Concomitant]
     Dosage: 5 MG, 2/D
     Route: 048
     Dates: end: 20080101
  6. GLIPIZIDE [Concomitant]
     Dosage: 5 MG, EACH MORNING
     Route: 048
     Dates: start: 20080101
  7. GLIPIZIDE [Concomitant]
     Dosage: 10 MG, EACH EVENING
     Route: 048
     Dates: start: 20080101
  8. NEXIUM [Concomitant]
     Dosage: 40 MG, DAILY (1/D)
     Route: 048
  9. TOPROL-XL [Concomitant]
     Indication: ATRIAL FIBRILLATION
     Dosage: 50 MG, DAILY (1/D)
     Route: 048
     Dates: start: 20040101
  10. GABAPENTIN [Concomitant]
     Indication: NERVOUS SYSTEM DISORDER
     Dosage: 2400 MG, DAILY (1/D)
     Route: 048
  11. LIPITOR [Concomitant]
     Indication: PROPHYLAXIS
     Dosage: 5 MG, DAILY (1/D)
     Route: 048
  12. CIALIS [Concomitant]
     Dates: start: 20060101
  13. TRAVATAN [Concomitant]
     Dosage: 0.004 %, DAILY (1/D)
     Route: 047
  14. WARFARIN SODIUM [Concomitant]
     Dosage: 5 MG, 5/W
     Dates: start: 20070701
  15. WARFARIN SODIUM [Concomitant]
     Dosage: 7.5 MG, 2/W
  16. CLOTRIMAZOLE W/BETAMETHASONE DIPROPIONAT [Concomitant]
     Indication: TINEA CRURIS
     Dosage: UNK, UNKNOWN
     Route: 061
  17. AM LACTIN [Concomitant]
     Indication: SKIN HYPERTROPHY

REACTIONS (9)
  - ABDOMINAL PAIN [None]
  - ABDOMINAL RIGIDITY [None]
  - BLOOD GLUCOSE INCREASED [None]
  - DECREASED APPETITE [None]
  - DIARRHOEA [None]
  - FAECALOMA [None]
  - NAUSEA [None]
  - PNEUMONIA [None]
  - WEIGHT DECREASED [None]
